FAERS Safety Report 16997171 (Version 1)
Quarter: 2019Q4

REPORT INFORMATION
  Report Type: Spontaneous
  Country: US (occurrence: US)
  Receive Date: 20190924
  Receipt Date: 20190924
  Transmission Date: 20200122
  Serious: No
  Sender: FDA-Public Use
  Company Number: None

PATIENT

DRUGS (2)
  1. FAMOTIDINE FAMOTIDINE [Suspect]
     Active Substance: FAMOTIDINE
  2. FOSPHENYTOIN FOSPHENYTOIN [Suspect]
     Active Substance: FOSPHENYTOIN

REACTIONS (3)
  - Product appearance confusion [None]
  - Product dispensing error [None]
  - Intercepted product selection error [None]
